FAERS Safety Report 6279223-5 (Version None)
Quarter: 2009Q3

REPORT INFORMATION
  Report Type: 
  Country: None (occurrence: None)
  Receive Date: 20090723
  Receipt Date: 20080829
  Transmission Date: 20100115
  Serious: No
  Sender: FDA-Public Use
  Company Number: US-AMGEN-KDL306074

PATIENT
  Age: 94 Year
  Sex: Female

DRUGS (1)
  1. PROCRIT [Suspect]
     Indication: RENAL FAILURE CHRONIC
     Route: 058
     Dates: start: 20080101, end: 20080101

REACTIONS (2)
  - BLOOD PRESSURE INCREASED [None]
  - DEMENTIA [None]
